FAERS Safety Report 5741957-6 (Version None)
Quarter: 2008Q2

REPORT INFORMATION
  Report Type: 
  Country: None (occurrence: None)
  Receive Date: 20080519
  Receipt Date: 20080509
  Transmission Date: 20081010
  Serious: Yes (Other)
  Sender: FDA-Public Use
  Company Number: US-ELI_LILLY_AND_COMPANY-US200803003358

PATIENT
  Sex: Female
  Weight: 81.633 kg

DRUGS (1)
  1. ZYPREXA [Suspect]
     Dates: start: 20000101, end: 20020101

REACTIONS (2)
  - ABSCESS [None]
  - DIABETES MELLITUS [None]
